FAERS Safety Report 9122968 (Version 1)
Quarter: 2013Q1

REPORT INFORMATION
  Report Type: Spontaneous
  Country: US (occurrence: None)
  Receive Date: 20130130
  Receipt Date: 20130130
  Transmission Date: 20140127
  Serious: Yes (Death)
  Sender: FDA-Public Use
  Company Number: B0859179A

PATIENT
  Age: 44 Year
  Sex: Female

DRUGS (7)
  1. DIAZEPAM [Suspect]
     Dosage: UNK / UNK / ORAL?UNK
     Route: 048
  2. PAROXETINE HYDROCHLORIDE [Suspect]
     Dosage: UNK / UNK / ORAL?UNK
     Route: 048
  3. DIPHENHYDRAMINE [Suspect]
     Dosage: UNK / UNK / ORAL?UNK
     Route: 048
  4. LORAZEPAM [Suspect]
     Dosage: UNK / UNK / ORAL?UNK
     Route: 048
  5. AMITRIPTYLINE [Suspect]
     Dosage: UNK / UNK / ORAL?UNK
     Route: 048
  6. OXYCODONE [Suspect]
     Dosage: UNK / UNK / ORAL?UNK
     Route: 048
  7. ZOLPIDEM [Suspect]
     Dosage: UNK / UNK / ORAL?UNK
     Route: 048

REACTIONS (1)
  - Drug abuse [None]
